FAERS Safety Report 25733216 (Version 1)
Quarter: 2025Q3

REPORT INFORMATION
  Report Type: Spontaneous
  Country: CA (occurrence: CA)
  Receive Date: 20250828
  Receipt Date: 20250828
  Transmission Date: 20251021
  Serious: Yes (Hospitalization, Other)
  Sender: Kenvue
  Company Number: CA-KENVUE-20250807390

PATIENT

DRUGS (4)
  1. TYLENOL [Interacting]
     Active Substance: ACETAMINOPHEN
     Indication: Influenza
     Route: 065
  2. INFLUENZA VIRUS VACCINE [Interacting]
     Active Substance: INFLUENZA VIRUS VACCINE
     Indication: Immunisation
     Route: 065
  3. NILOTINIB HYDROCHLORIDE MONOHYDRATE [Interacting]
     Active Substance: NILOTINIB HYDROCHLORIDE MONOHYDRATE
     Indication: Chronic myeloid leukaemia
     Dosage: 400 MILLIGRAM, TWICE A DAY (2 EVERY 1 DAYS)
     Route: 048
  4. NILOTINIB HYDROCHLORIDE MONOHYDRATE [Interacting]
     Active Substance: NILOTINIB HYDROCHLORIDE MONOHYDRATE
     Dosage: 300 MILLIGRAM, TWICE A DAY (2 EVERY 1 DAYS)
     Route: 065

REACTIONS (20)
  - Abdominal pain [Not Recovered/Not Resolved]
  - Burning sensation [Not Recovered/Not Resolved]
  - Depressed mood [Not Recovered/Not Resolved]
  - Drug interaction [Not Recovered/Not Resolved]
  - Dry skin [Not Recovered/Not Resolved]
  - Haemorrhage [Not Recovered/Not Resolved]
  - Hepatic enzyme abnormal [Not Recovered/Not Resolved]
  - Illness [Not Recovered/Not Resolved]
  - Influenza [Not Recovered/Not Resolved]
  - Pain of skin [Not Recovered/Not Resolved]
  - Pneumonia [Not Recovered/Not Resolved]
  - Pruritus [Not Recovered/Not Resolved]
  - Psoriasis [Not Recovered/Not Resolved]
  - Scab [Not Recovered/Not Resolved]
  - Skin exfoliation [Not Recovered/Not Resolved]
  - Skin haemorrhage [Not Recovered/Not Resolved]
  - Visceral pain [Not Recovered/Not Resolved]
  - Rash [Not Recovered/Not Resolved]
  - Rash pruritic [Not Recovered/Not Resolved]
  - Drug ineffective [Not Recovered/Not Resolved]
